FAERS Safety Report 6118883-6 (Version None)
Quarter: 2009Q1

REPORT INFORMATION
  Report Type: 
  Country: None (occurrence: None)
  Receive Date: 20090316
  Receipt Date: 20090311
  Transmission Date: 20090719
  Serious: Yes (Death)
  Sender: FDA-Public Use
  Company Number: CA-JNJFOC-20040808006

PATIENT
  Sex: Female
  Weight: 76.2 kg

DRUGS (9)
  1. DURAGESIC-100 [Suspect]
     Route: 062
  2. DURAGESIC-100 [Suspect]
     Route: 062
  3. DURAGESIC-100 [Suspect]
     Route: 062
  4. DURAGESIC-100 [Suspect]
     Indication: PAIN
     Route: 062
  5. OXYCET [Concomitant]
     Dosage: AS NEEDED FOR BREAKTHROUGH PAIN (APPROXIMATELY THREE TABLETS PER DAY)
  6. RISPERDAL [Concomitant]
  7. SEROQUEL [Concomitant]
  8. ATIVAN [Concomitant]
     Dosage: AS NEEDED
  9. ARIMIDEX [Concomitant]
     Indication: NEOPLASM MALIGNANT

REACTIONS (4)
  - DEATH [None]
  - DRUG ADMINISTRATION ERROR [None]
  - EYE MOVEMENT DISORDER [None]
  - SOMNOLENCE [None]
